FAERS Safety Report 25462122 (Version 1)
Quarter: 2025Q2

REPORT INFORMATION
  Report Type: Spontaneous
  Country: GB (occurrence: GB)
  Receive Date: 20250620
  Receipt Date: 20250620
  Transmission Date: 20250716
  Serious: Yes (Other)
  Sender: PFIZER
  Company Number: None

PATIENT
  Weight: 57 kg

DRUGS (1)
  1. AZITHROMYCIN [Suspect]
     Active Substance: AZITHROMYCIN
     Indication: Pharyngitis
     Route: 065
     Dates: start: 20250612, end: 20250612

REACTIONS (7)
  - Blister [Recovering/Resolving]
  - Dermatitis [Not Recovered/Not Resolved]
  - Mouth ulceration [Recovering/Resolving]
  - Rash [Not Recovered/Not Resolved]
  - Pain in extremity [Unknown]
  - Hypersensitivity [Unknown]
  - Off label use [Unknown]

NARRATIVE: CASE EVENT DATE: 20250601
